FAERS Safety Report 6232930-2 (Version None)
Quarter: 2009Q2

REPORT INFORMATION
  Report Type: 
  Country: None (occurrence: None)
  Receive Date: 20090612
  Receipt Date: 20090612
  Transmission Date: 20091009
  Serious: Yes (Other)
  Sender: FDA-Public Use
  Company Number: None

PATIENT
  Age: 85 Year
  Sex: Male
  Weight: 106.6 kg

DRUGS (7)
  1. CEFUROXIME [Suspect]
     Indication: STAPHYLOCOCCAL BACTERAEMIA
     Dosage: 500MG EVERY 12 HOURS PO
     Route: 048
     Dates: start: 20090601, end: 20090607
  2. VANCOMYCIN HCL [Concomitant]
  3. WARFARIN SODIUM [Concomitant]
  4. DILTIAZEM [Concomitant]
  5. DOCUSATE [Concomitant]
  6. GLIPIZIDE [Concomitant]
  7. ONDANSETRON [Concomitant]

REACTIONS (2)
  - PRURITUS [None]
  - RASH MACULO-PAPULAR [None]
